FAERS Safety Report 7767126-6 (Version None)
Quarter: 2011Q3

REPORT INFORMATION
  Report Type: 
  Country: None (occurrence: None)
  Receive Date: 20110922
  Receipt Date: 20100830
  Transmission Date: 20111222
  Serious: No
  Sender: FDA-Public Use
  Company Number: US-ASTRAZENECA-2007UW27731

PATIENT
  Age: 42 Year
  Sex: Female
  Weight: 99.8 kg

DRUGS (8)
  1. SEROQUEL [Suspect]
     Indication: ANXIETY
     Route: 048
     Dates: start: 20050503, end: 20070127
  2. ABILIFY [Concomitant]
     Dates: start: 20090101, end: 20100101
  3. SEROQUEL [Suspect]
     Route: 048
     Dates: start: 20050829, end: 20070127
  4. RISPERDAL [Concomitant]
     Indication: DEPRESSION
     Dates: start: 20080101
  5. SEROQUEL [Suspect]
     Indication: DEPRESSION
     Route: 048
     Dates: start: 20050503, end: 20070127
  6. SEROQUEL [Suspect]
     Indication: SLEEP DISORDER
     Route: 048
     Dates: start: 20050503, end: 20070127
  7. SEROQUEL [Suspect]
     Route: 048
     Dates: start: 20050829, end: 20070127
  8. SEROQUEL [Suspect]
     Route: 048
     Dates: start: 20050829, end: 20070127

REACTIONS (4)
  - DIABETIC COMPLICATION [None]
  - DIABETES MELLITUS INADEQUATE CONTROL [None]
  - WEIGHT INCREASED [None]
  - TYPE 2 DIABETES MELLITUS [None]
